FAERS Safety Report 9403915 (Version 2)
Quarter: 2013Q3

REPORT INFORMATION
  Report Type: Spontaneous
  Country: DE (occurrence: DE)
  Receive Date: 20130717
  Receipt Date: 20130723
  Transmission Date: 20140515
  Serious: Yes (Other)
  Sender: FDA-Public Use
  Company Number: DE-JNJFOC-20130707311

PATIENT
  Age: 82 Year
  Sex: Male
  Weight: 100 kg

DRUGS (6)
  1. XARELTO [Suspect]
     Indication: CEREBROVASCULAR ACCIDENT PROPHYLAXIS
     Route: 048
     Dates: start: 20130328, end: 20130605
  2. XARELTO [Suspect]
     Indication: ATRIAL FIBRILLATION
     Route: 048
     Dates: start: 20130328, end: 20130605
  3. MODIP [Concomitant]
     Indication: HYPERTENSION
     Route: 065
  4. ALLO-300 [Concomitant]
     Route: 065
  5. FUROSEMID [Concomitant]
     Indication: CARDIAC FAILURE
     Route: 065
  6. DELIX [Concomitant]
     Indication: HYPERTENSION
     Route: 065

REACTIONS (1)
  - Dermatitis bullous [Recovering/Resolving]
